FAERS Safety Report 15545137 (Version 1)
Quarter: 2018Q4

REPORT INFORMATION
  Report Type: Spontaneous
  Country: US (occurrence: US)
  Receive Date: 20181024
  Receipt Date: 20181024
  Transmission Date: 20190205
  Serious: No
  Sender: FDA-Public Use
  Company Number: US-BRISTOL-MYERS SQUIBB COMPANY-BMS-2018-099600

PATIENT
  Sex: Female

DRUGS (1)
  1. ELIQUIS [Suspect]
     Active Substance: APIXABAN
     Indication: THROMBOSIS PROPHYLAXIS
     Dosage: UNAVAILABLE
     Route: 065
     Dates: start: 201807

REACTIONS (4)
  - Dizziness [Unknown]
  - Nasopharyngitis [Unknown]
  - Euphoric mood [Unknown]
  - Treatment noncompliance [Unknown]
